FAERS Safety Report 9276959 (Version 1)
Quarter: 2013Q2

REPORT INFORMATION
  Report Type: Spontaneous
  Country: US (occurrence: US)
  Receive Date: 20130507
  Receipt Date: 20130507
  Transmission Date: 20140414
  Serious: No
  Sender: FDA-Public Use
  Company Number: US-ASTRAZENECA-2013SE23136

PATIENT
  Age: 68 Year
  Sex: Female
  Weight: 70.3 kg

DRUGS (4)
  1. CRESTOR [Suspect]
     Indication: BLOOD CHOLESTEROL INCREASED
     Route: 048
     Dates: start: 20130304
  2. LISINOPRIL [Concomitant]
     Indication: HYPERTENSION
  3. AGRINOX [Concomitant]
  4. BABY ASA [Concomitant]

REACTIONS (2)
  - Eczema [Not Recovered/Not Resolved]
  - Rash maculo-papular [Not Recovered/Not Resolved]
